FAERS Safety Report 18913240 (Version 1)
Quarter: 2021Q1

REPORT INFORMATION
  Report Type: Other
  Country: CA (occurrence: CA)
  Receive Date: 20210219
  Receipt Date: 20210219
  Transmission Date: 20210420
  Serious: Yes (Death, Other)
  Sender: FDA-Public Use
  Company Number: CA-APOTEX-2021AP003185

PATIENT
  Age: 86 Year
  Sex: Male

DRUGS (1)
  1. TRAMADOL. [Suspect]
     Active Substance: TRAMADOL
     Indication: PRODUCT USED FOR UNKNOWN INDICATION
     Dosage: UNK
     Route: 065

REACTIONS (7)
  - Pulse absent [Fatal]
  - Sleep terror [Fatal]
  - Fall [Fatal]
  - Toxicologic test [Fatal]
  - Multiple injuries [Fatal]
  - Multiple fractures [Fatal]
  - Hallucination [Fatal]
